FAERS Safety Report 9000868 (Version 1)
Quarter: 2013Q1

REPORT INFORMATION
  Report Type: Spontaneous
  Country: US (occurrence: None)
  Receive Date: 20130103
  Receipt Date: 20130103
  Transmission Date: 20140127
  Serious: Yes (Life-Threatening)
  Sender: FDA-Public Use
  Company Number: None

PATIENT
  Age: 61 Year
  Sex: Female
  Weight: 60.78 kg

DRUGS (1)
  1. PREMARIN VAGINAL CREAM [Suspect]
     Dosage: 1/2 APPLICATOR 3 TIMES A WEEK VAG
     Dates: start: 20080129, end: 20120901

REACTIONS (1)
  - Retinal vascular thrombosis [None]
